FAERS Safety Report 18161770 (Version 1)
Quarter: 2020Q3

REPORT INFORMATION
  Report Type: Other
  Country: FR (occurrence: FR)
  Receive Date: 20200817
  Receipt Date: 20200817
  Transmission Date: 20201103
  Serious: Yes (Hospitalization)
  Sender: FDA-Public Use
  Company Number: FR-ROCHE-2657979

PATIENT
  Age: 76 Year
  Sex: Female

DRUGS (4)
  1. BENDAMUSTINE [Suspect]
     Active Substance: BENDAMUSTINE
     Indication: OCULAR LYMPHOMA
     Dosage: LATEST DOSE RECEIVED ON 16/MAR/2020
     Route: 065
     Dates: start: 20200212
  2. PREDNISONE. [Concomitant]
     Active Substance: PREDNISONE
     Dosage: FOR 7 DAYS
     Route: 065
  3. LOPINAVIR;RITONAVIR [Concomitant]
     Active Substance: LOPINAVIR\RITONAVIR
  4. RITUXIMAB. [Suspect]
     Active Substance: RITUXIMAB
     Indication: OCULAR LYMPHOMA
     Dosage: LATEST DOSE RECEIVED ON 16/MAR/2020
     Route: 065
     Dates: start: 20200312

REACTIONS (2)
  - COVID-19 pneumonia [Recovered/Resolved]
  - Cytokine release syndrome [Recovered/Resolved]
